FAERS Safety Report 18264654 (Version 2)
Quarter: 2020Q4

REPORT INFORMATION
  Report Type: Spontaneous
  Country: BE (occurrence: BE)
  Receive Date: 20200914
  Receipt Date: 20201009
  Transmission Date: 20210113
  Serious: Yes (Hospitalization)
  Sender: FDA-Public Use
  Company Number: BE-ELI_LILLY_AND_COMPANY-BE202009000520

PATIENT
  Age: 83 Year
  Sex: Male
  Weight: 68.25 kg

DRUGS (4)
  1. LEDERTREXATE SODIUM [Concomitant]
     Indication: PRODUCT USED FOR UNKNOWN INDICATION
     Dosage: 20 MG, WEEKLY (1/W)
  2. OLUMIANT [Suspect]
     Active Substance: BARICITINIB
     Indication: RHEUMATOID ARTHRITIS
     Dosage: 1 TABLET OF OLUMIANT 4 MG ONCE A DAY
     Route: 048
     Dates: start: 20181031
  3. FOLIC ACID. [Concomitant]
     Active Substance: FOLIC ACID
     Indication: PRODUCT USED FOR UNKNOWN INDICATION
     Dosage: 1 MG, DAILY
     Route: 065
  4. D-CURE [Concomitant]
     Active Substance: CHOLECALCIFEROL
     Indication: PRODUCT USED FOR UNKNOWN INDICATION
     Dosage: 2 DOSAGE FORM, MONTHLY (1/M)
     Route: 065

REACTIONS (14)
  - Encephalitis [Recovering/Resolving]
  - Headache [Recovering/Resolving]
  - Neurological decompensation [Unknown]
  - Pyrexia [Recovering/Resolving]
  - Hemiparesis [Recovering/Resolving]
  - Dizziness postural [Recovering/Resolving]
  - Vasculitis [Unknown]
  - Altered state of consciousness [Recovering/Resolving]
  - Apnoea [Unknown]
  - Dizziness [Recovering/Resolving]
  - Hyponatraemia [Recovering/Resolving]
  - Musculoskeletal stiffness [Recovering/Resolving]
  - Decreased appetite [Recovering/Resolving]
  - Cerebellar ischaemia [Unknown]

NARRATIVE: CASE EVENT DATE: 20200807
